FAERS Safety Report 8830774 (Version 1)
Quarter: 2012Q4

REPORT INFORMATION
  Report Type: 
  Country: US (occurrence: US)
  Receive Date: 20121008
  Receipt Date: 20121008
  Transmission Date: 20130627
  Serious: No
  Sender: FDA-Public Use
  Company Number: US-009507513-1210USA002409

PATIENT
  Sex: Female

DRUGS (1)
  1. MIRALAX [Suspect]
     Indication: MEDICAL OBSERVATION
     Dosage: 34 g, qd
     Route: 048

REACTIONS (2)
  - Overdose [Unknown]
  - Wrong technique in drug usage process [Unknown]
